FAERS Safety Report 17418142 (Version 2)
Quarter: 2021Q1

REPORT INFORMATION
  Report Type: Report from Study
  Country: None (occurrence: AU)
  Receive Date: 20200213
  Receipt Date: 20210205
  Transmission Date: 20210419
  Serious: Yes (Death, Hospitalization, Other)
  Sender: FDA-Public Use
  Company Number: AU-ABBVIE-20K-008-3274276-00

PATIENT
  Sex: Male

DRUGS (2)
  1. LUCRIN DEPOT [Suspect]
     Active Substance: LEUPROLIDE ACETATE
     Indication: PROSTATE CANCER
     Route: 030
     Dates: start: 20191223
  2. LUCRIN DEPOT [Suspect]
     Active Substance: LEUPROLIDE ACETATE
     Route: 030
     Dates: start: 20200224, end: 20201116

REACTIONS (3)
  - Condition aggravated [Fatal]
  - Metastasis [Fatal]
  - Metastases to bone [Fatal]
